FAERS Safety Report 16899017 (Version 1)
Quarter: 2019Q4

REPORT INFORMATION
  Report Type: Spontaneous
  Country: US (occurrence: US)
  Receive Date: 20191008
  Receipt Date: 20191008
  Transmission Date: 20200122
  Serious: Yes (Other)
  Sender: FDA-Public Use
  Company Number: None

PATIENT
  Age: 34 Year
  Sex: Female
  Weight: 65.25 kg

DRUGS (1)
  1. TRINESSA LO [Suspect]
     Active Substance: ETHINYL ESTRADIOL\NORGESTIMATE
     Indication: CONTRACEPTION
     Route: 048
     Dates: end: 20190121

REACTIONS (5)
  - Foetal exposure during pregnancy [None]
  - Maternal exposure before pregnancy [None]
  - Treatment failure [None]
  - Maternal exposure during pregnancy [None]
  - Unintended pregnancy [None]

NARRATIVE: CASE EVENT DATE: 20181226
